FAERS Safety Report 21366072 (Version 1)
Quarter: 2022Q3

REPORT INFORMATION
  Report Type: Report from Study
  Country: US (occurrence: US)
  Receive Date: 20220922
  Receipt Date: 20220922
  Transmission Date: 20221026
  Serious: Yes (Hospitalization, Other)
  Sender: FDA-Public Use
  Company Number: US-CELGENE-USA-2016062204

PATIENT
  Age: 74 Year
  Sex: Female
  Weight: 51.9 kg

DRUGS (39)
  1. CARBOPLATIN [Suspect]
     Active Substance: CARBOPLATIN
     Indication: B-cell lymphoma
     Dosage: AUC 6MG* MIN/ML
     Route: 042
     Dates: start: 20160513, end: 20160602
  2. CARBOPLATIN [Suspect]
     Active Substance: CARBOPLATIN
     Dosage: AUC 6MG* MIN/ML
     Route: 042
     Dates: start: 20160603
  3. ALBUTEROL [Concomitant]
     Active Substance: ALBUTEROL
     Indication: Chronic obstructive pulmonary disease
     Route: 065
     Dates: start: 20160418
  4. ASPIRIN [Concomitant]
     Active Substance: ASPIRIN
     Indication: Arthralgia
     Route: 048
     Dates: start: 20121015, end: 20160423
  5. BENZONATATE [Concomitant]
     Active Substance: BENZONATATE
     Indication: Cough
     Route: 048
     Dates: start: 20160418
  6. BUPROPION [Concomitant]
     Active Substance: BUPROPION
     Indication: Depression
     Route: 048
     Dates: start: 2005
  7. CALCIUM\VITAMIN D [Concomitant]
     Active Substance: CALCIUM\VITAMIN D
     Indication: Osteoporosis
     Route: 048
     Dates: start: 20160317, end: 20160520
  8. CODEINE GUAIFENESIN [Concomitant]
     Active Substance: CODEINE PHOSPHATE\GUAIFENESIN
     Indication: Cough
     Dosage: 10-100MG/5ML
     Route: 048
     Dates: start: 20160426
  9. FAMOTIDINE [Concomitant]
     Active Substance: FAMOTIDINE
     Indication: Gastrooesophageal reflux disease
     Route: 048
     Dates: start: 20160418
  10. LORAZEPAM [Concomitant]
     Active Substance: LORAZEPAM
     Indication: Anxiety
     Route: 048
     Dates: start: 20160501
  11. LOVASTATIN [Concomitant]
     Active Substance: LOVASTATIN
     Indication: Hyperlipidaemia
     Route: 048
     Dates: start: 20070326
  12. METOPROLOL TARTRATE [Concomitant]
     Active Substance: METOPROLOL TARTRATE
     Indication: Atrial fibrillation
     Route: 048
     Dates: start: 2008, end: 20160521
  13. PROCHLORPERAZINE [Concomitant]
     Active Substance: PROCHLORPERAZINE
     Indication: Nausea
     Route: 048
     Dates: start: 20160513
  14. PROCHLORPERAZINE [Concomitant]
     Active Substance: PROCHLORPERAZINE
     Route: 042
     Dates: start: 20160430, end: 20160501
  15. SUMATRIPTAN SUCCINATE [Concomitant]
     Active Substance: SUMATRIPTAN SUCCINATE
     Indication: Migraine
     Route: 048
     Dates: start: 20080629
  16. VALACYCLOVIR [Concomitant]
     Active Substance: VALACYCLOVIR HYDROCHLORIDE
     Indication: Herpes simplex
     Route: 048
     Dates: start: 2006
  17. ACETAMINOPHEN [Concomitant]
     Active Substance: ACETAMINOPHEN
     Indication: Pyrexia
     Route: 048
     Dates: start: 20160501, end: 20160802
  18. AZACTAM [Concomitant]
     Active Substance: AZTREONAM
     Indication: Drug eruption
     Route: 042
     Dates: start: 20160430, end: 20160501
  19. TUMS [Concomitant]
     Active Substance: CALCIUM CARBONATE
     Indication: Gastrooesophageal reflux disease
     Route: 048
     Dates: start: 20160501, end: 20160501
  20. CEFEPIME [Concomitant]
     Active Substance: CEFEPIME HYDROCHLORIDE
     Indication: Pleural effusion
     Route: 042
     Dates: start: 20160501, end: 20160501
  21. IOPAMIDOL [Concomitant]
     Active Substance: IOPAMIDOL
     Indication: Product used for unknown indication
     Route: 042
     Dates: start: 20160430, end: 20160430
  22. MAGNESIUM SULFATE [Concomitant]
     Active Substance: MAGNESIUM SULFATE
     Indication: Pleural effusion
     Route: 042
     Dates: start: 20160501, end: 20160501
  23. MELATONIN [Concomitant]
     Active Substance: MELATONIN
     Indication: Supplementation therapy
     Route: 048
     Dates: start: 20160501, end: 20160501
  24. VANCOMYCIN [Concomitant]
     Active Substance: VANCOMYCIN
     Indication: Pleural effusion
     Route: 042
     Dates: start: 20160430, end: 20160501
  25. VANCOMYCIN [Concomitant]
     Active Substance: VANCOMYCIN
     Route: 042
     Dates: start: 20160501, end: 20160501
  26. DOCUSATE SODIUM [Concomitant]
     Active Substance: DOCUSATE SODIUM
     Indication: Constipation prophylaxis
     Route: 048
     Dates: start: 20160509, end: 20160510
  27. ENOXAPARIN [Concomitant]
     Active Substance: ENOXAPARIN
     Indication: Thrombosis prophylaxis
     Route: 058
     Dates: start: 20160507, end: 20160508
  28. DILAUDID [Concomitant]
     Active Substance: HYDROMORPHONE HYDROCHLORIDE
     Indication: Chest pain
     Route: 058
     Dates: start: 20160507, end: 20160510
  29. ONDANSETRON [Concomitant]
     Active Substance: ONDANSETRON
     Indication: Prophylaxis of nausea and vomiting
     Route: 042
     Dates: start: 20160507, end: 20160510
  30. POLYETHYLENE GLYCOL [Concomitant]
     Active Substance: POLYETHYLENE GLYCOL
     Indication: Constipation prophylaxis
     Route: 048
     Dates: start: 20160509, end: 20160513
  31. CITALOPRAM [Concomitant]
     Active Substance: CITALOPRAM HYDROBROMIDE
     Indication: Depression
     Route: 048
     Dates: start: 20160510, end: 20160513
  32. OXYCODONE [Concomitant]
     Active Substance: OXYCODONE
     Indication: Chest pain
     Route: 048
     Dates: start: 20160507
  33. Sennosides docusate [Concomitant]
     Indication: Constipation prophylaxis
     Route: 048
     Dates: start: 20160510, end: 20160513
  34. SIMETHICONE (DIMETHICONE) [Concomitant]
     Active Substance: DIMETHICONE
     Indication: Constipation prophylaxis
     Route: 048
     Dates: start: 20160507, end: 20160510
  35. CHOLECALCIFEROL [Concomitant]
     Active Substance: CHOLECALCIFEROL
     Indication: Product used for unknown indication
     Dosage: 1 DF= 1000 UNITS
     Route: 048
     Dates: start: 20160520
  36. EMLA [Concomitant]
     Active Substance: LIDOCAINE\PRILOCAINE
     Indication: Central venous catheterisation
     Dosage: FREQUENCY TEXT: PRN
     Route: 061
     Dates: start: 20160520
  37. SENNA [Concomitant]
     Active Substance: SENNA LEAF\SENNOSIDES\SENNOSIDES A AND B
     Indication: Constipation
     Route: 048
     Dates: start: 20160517, end: 20160520
  38. IMODIUM [Concomitant]
     Active Substance: LOPERAMIDE HYDROCHLORIDE
     Indication: Diarrhoea
     Dosage: FREQUENCY TEXT: PRN
     Route: 048
     Dates: start: 20160524, end: 20160524
  39. BACTRIM [Concomitant]
     Active Substance: SULFAMETHOXAZOLE\TRIMETHOPRIM
     Indication: Urinary tract infection
     Dosage: 800-160MG
     Route: 048
     Dates: start: 20160601, end: 20160604

REACTIONS (3)
  - Atrial fibrillation [Not Recovered/Not Resolved]
  - Hyponatraemia [Not Recovered/Not Resolved]
  - Neutropenia [Not Recovered/Not Resolved]

NARRATIVE: CASE EVENT DATE: 20160513
